FAERS Safety Report 18497866 (Version 1)
Quarter: 2020Q4

REPORT INFORMATION
  Report Type: Spontaneous
  Country: US (occurrence: US)
  Receive Date: 20201112
  Receipt Date: 20201112
  Transmission Date: 20210114
  Serious: No
  Sender: FDA-Public Use
  Company Number: US-THERAPEUTICSMD-2020TMD04080

PATIENT
  Age: 52 Year
  Sex: Female
  Weight: 68.03 kg

DRUGS (8)
  1. CULTURELLE [Concomitant]
     Active Substance: LACTOBACILLUS RHAMNOSUS
  2. BIJUVA [Suspect]
     Active Substance: ESTRADIOL\PROGESTERONE
     Indication: MENOPAUSAL SYMPTOMS
     Dosage: 1 CAPSULE, 1X/DAY AT NIGHT
     Route: 048
     Dates: start: 20200828, end: 20200922
  3. BIJUVA [Suspect]
     Active Substance: ESTRADIOL\PROGESTERONE
     Indication: HOT FLUSH
  4. ZYRTEC [Concomitant]
     Active Substance: CETIRIZINE HYDROCHLORIDE
     Dosage: UNK, 1X/DAY AT NIGHT
  5. BIJUVA [Suspect]
     Active Substance: ESTRADIOL\PROGESTERONE
     Indication: INSOMNIA
  6. FLU SHOT [Suspect]
     Active Substance: INFLUENZA VIRUS VACCINE
     Dosage: UNK
     Dates: start: 20200910, end: 20200910
  7. MULTIVITAMIN [Concomitant]
     Active Substance: VITAMINS
  8. MAGNESIUM [Concomitant]
     Active Substance: MAGNESIUM

REACTIONS (7)
  - Joint injury [Unknown]
  - Arthritis [Recovering/Resolving]
  - Arthralgia [Recovering/Resolving]
  - Gait inability [Recovering/Resolving]
  - Drug interaction [Unknown]
  - Pain [Recovering/Resolving]
  - Joint swelling [Not Recovered/Not Resolved]

NARRATIVE: CASE EVENT DATE: 20200910
